FAERS Safety Report 11778225 (Version 1)
Quarter: 2015Q4

REPORT INFORMATION
  Report Type: Spontaneous
  Country: RO (occurrence: RO)
  Receive Date: 20151125
  Receipt Date: 20151125
  Transmission Date: 20160304
  Serious: Yes (Other)
  Sender: FDA-Public Use
  Company Number: RO-B.I. PHARMACEUTICALS,INC./RIDGEFIELD-2015-BI-65105RN

PATIENT
  Age: 62 Year
  Sex: Female
  Weight: 70 kg

DRUGS (8)
  1. LOCREN [Concomitant]
     Indication: HYPERTENSION
     Dosage: 10 MG
     Route: 065
  2. OLICARD [Concomitant]
     Indication: HYPERTENSIVE CARDIOMYOPATHY
     Dosage: 80 MG
     Route: 065
  3. OLICARD [Concomitant]
     Indication: ANGINA PECTORIS
  4. PRADAXA [Suspect]
     Active Substance: DABIGATRAN ETEXILATE MESYLATE
     Indication: ATRIAL FIBRILLATION
  5. LOCREN [Concomitant]
     Indication: ANGINA PECTORIS
  6. ACCUPRO [Concomitant]
     Active Substance: QUINAPRIL HYDROCHLORIDE
     Indication: HYPERTENSIVE CARDIOMYOPATHY
     Dosage: 20 MG
     Route: 065
  7. PRADAXA [Suspect]
     Active Substance: DABIGATRAN ETEXILATE MESYLATE
     Indication: CEREBROVASCULAR ACCIDENT PROPHYLAXIS
     Dosage: 300 MG
     Route: 048
     Dates: start: 20151010, end: 20151015
  8. INDAPAMID [Concomitant]
     Active Substance: INDAPAMIDE
     Indication: HYPERTENSIVE CARDIOMYOPATHY
     Dosage: 1.5 MG
     Route: 065

REACTIONS (1)
  - Retinal detachment [Recovered/Resolved]

NARRATIVE: CASE EVENT DATE: 20151015
